FAERS Safety Report 5657941-7 (Version None)
Quarter: 2008Q1

REPORT INFORMATION
  Report Type: 
  Country: None (occurrence: None)
  Receive Date: 20080305
  Receipt Date: 20080218
  Transmission Date: 20080703
  Serious: No
  Sender: FDA-Public Use
  Company Number: 8029976

PATIENT
  Age: 11 Year
  Sex: Male
  Weight: 38 kg

DRUGS (2)
  1. METHYLPHENIDATE HCL [Suspect]
     Indication: ATTENTION DEFICIT/HYPERACTIVITY DISORDER
     Dosage: 30 MG 1/D
     Dates: start: 20070117, end: 20070131
  2. CONCERTA [Concomitant]

REACTIONS (11)
  - ANXIETY [None]
  - APATHY [None]
  - CRYING [None]
  - FATIGUE [None]
  - GASTROINTESTINAL PAIN [None]
  - HEADACHE [None]
  - HYPOTONIA [None]
  - MALAISE [None]
  - MOROSE [None]
  - ONYCHOPHAGIA [None]
  - TIC [None]
